FAERS Safety Report 25482402 (Version 2)
Quarter: 2025Q3

REPORT INFORMATION
  Report Type: Report from Study
  Country: EU (occurrence: EU)
  Receive Date: 20250626
  Receipt Date: 20250805
  Transmission Date: 20251020
  Serious: No
  Sender: ABBVIE
  Company Number: EU-ABBVIE-6322731

PATIENT
  Age: 81 Year
  Sex: Female

DRUGS (2)
  1. CARBIDOPA\LEVODOPA [Suspect]
     Active Substance: CARBIDOPA\LEVODOPA
     Indication: Parkinson^s disease
     Route: 050
     Dates: start: 20250127
  2. CARBIDOPA\LEVODOPA [Suspect]
     Active Substance: CARBIDOPA\LEVODOPA

REACTIONS (7)
  - Incorrect route of product administration [Recovered/Resolved]
  - Device occlusion [Recovered/Resolved]
  - Hypokinesia [Not Recovered/Not Resolved]
  - Stoma site discharge [Not Recovered/Not Resolved]
  - Stoma site erythema [Not Recovered/Not Resolved]
  - Device issue [Not Recovered/Not Resolved]
  - Device occlusion [Recovered/Resolved]

NARRATIVE: CASE EVENT DATE: 20250101
